FAERS Safety Report 8432649-3 (Version None)
Quarter: 2012Q2

REPORT INFORMATION
  Report Type: 
  Country: None (occurrence: None)
  Receive Date: 20120613
  Receipt Date: 20120604
  Transmission Date: 20120825
  Serious: Yes (Hospitalization)
  Sender: FDA-Public Use
  Company Number: US-BAYER-2012-038541

PATIENT
  Age: 23 Year
  Sex: Female
  Weight: 65.76 kg

DRUGS (8)
  1. DROSPIRENONE AND ETHINYL ESTRADIOL [Suspect]
     Indication: ACNE
     Dosage: UNK
     Dates: start: 20061201, end: 20100423
  2. GARDASIL [Concomitant]
     Dates: start: 20091120, end: 20091120
  3. YAZ [Suspect]
     Indication: ACNE
     Dosage: UNK
     Dates: start: 20061201, end: 20100423
  4. GARDASIL [Concomitant]
     Dates: start: 20090918, end: 20090918
  5. ALLEGRA-D 12 HOUR [Concomitant]
     Indication: UPPER RESPIRATORY TRACT INFECTION
     Dosage: UNK
     Route: 048
     Dates: start: 20100401
  6. FLONASE [Concomitant]
  7. GARDASIL [Concomitant]
     Dosage: UNK
     Dates: start: 20100318, end: 20100318
  8. ALKA SELTZER PLUS [Concomitant]
     Dosage: UNK
     Dates: start: 20100401

REACTIONS (3)
  - HEMIPARESIS [None]
  - PAIN [None]
  - CEREBRAL INFARCTION [None]
